FAERS Safety Report 16318701 (Version 5)
Quarter: 2019Q3

REPORT INFORMATION
  Report Type: Spontaneous
  Country: US (occurrence: US)
  Receive Date: 20190516
  Receipt Date: 20190819
  Transmission Date: 20191004
  Serious: Yes (Other)
  Sender: FDA-Public Use
  Company Number: US-ELI_LILLY_AND_COMPANY-US201905003541

PATIENT
  Sex: Male

DRUGS (7)
  1. HUMALOG [Suspect]
     Active Substance: INSULIN LISPRO
     Dosage: 16 U, TID
     Route: 058
  2. TRESIBA [Concomitant]
     Active Substance: INSULIN DEGLUDEC
     Indication: TYPE 2 DIABETES MELLITUS
     Dosage: 20 U, DAILY
  3. HUMALOG [Suspect]
     Active Substance: INSULIN LISPRO
     Indication: DIABETES MELLITUS
     Dosage: 10 U, UNKNOWN
     Route: 058
     Dates: start: 2013
  4. HUMALOG [Suspect]
     Active Substance: INSULIN LISPRO
     Dosage: 10 U, UNKNOWN
     Route: 058
  5. HUMALOG [Suspect]
     Active Substance: INSULIN LISPRO
     Dosage: 16 U, TID
     Route: 058
  6. HUMALOG [Suspect]
     Active Substance: INSULIN LISPRO
     Dosage: 10 U, UNKNOWN
     Route: 058
  7. HUMALOG [Suspect]
     Active Substance: INSULIN LISPRO
     Dosage: 10 U, UNKNOWN
     Route: 058

REACTIONS (21)
  - Vein rupture [Unknown]
  - Fall [Unknown]
  - Hand fracture [Unknown]
  - Thinking abnormal [Unknown]
  - Nausea [Unknown]
  - Visual impairment [Unknown]
  - Suicidal ideation [Unknown]
  - Injection site haemorrhage [Unknown]
  - Gait inability [Not Recovered/Not Resolved]
  - Dizziness [Not Recovered/Not Resolved]
  - Feeling abnormal [Not Recovered/Not Resolved]
  - Vertigo [Unknown]
  - Injection site injury [Unknown]
  - Peripheral swelling [Unknown]
  - Injection site pain [Unknown]
  - Emotional distress [Unknown]
  - Discomfort [Unknown]
  - Reading disorder [Unknown]
  - Vision blurred [Unknown]
  - Malaise [Not Recovered/Not Resolved]
  - Injection site bruising [Unknown]
